FAERS Safety Report 23159014 (Version 3)
Quarter: 2024Q1

REPORT INFORMATION
  Report Type: Spontaneous
  Country: DE (occurrence: None)
  Receive Date: 20231108
  Receipt Date: 20240216
  Transmission Date: 20240409
  Serious: Yes (Other)
  Sender: FDA-Public Use
  Company Number: DE-ROCHE-3454109

PATIENT
  Sex: Female
  Weight: 98 kg

DRUGS (1)
  1. OCREVUS [Suspect]
     Active Substance: OCRELIZUMAB
     Indication: Multiple sclerosis
     Dosage: LAST DOSE ON 04/APR/2023
     Route: 065

REACTIONS (3)
  - Tongue neoplasm malignant stage unspecified [Unknown]
  - Lip and/or oral cavity cancer [Unknown]
  - Depression [Unknown]
